FAERS Safety Report 16093361 (Version 1)
Quarter: 2019Q1

REPORT INFORMATION
  Report Type: Spontaneous
  Country: ES (occurrence: ES)
  Receive Date: 20190320
  Receipt Date: 20190320
  Transmission Date: 20190418
  Serious: Yes (Other)
  Sender: FDA-Public Use
  Company Number: ES-TEVA-2019-ES-1025912

PATIENT
  Age: 89 Year
  Sex: Male
  Weight: 80 kg

DRUGS (3)
  1. SINEMET PLUS RETARD 25 MG/100 MG COMPRIMIDOS DE LIBERACION PROLONGADA [Suspect]
     Active Substance: CARBIDOPA\LEVODOPA
     Indication: PARKINSON^S DISEASE
     Route: 048
     Dates: start: 20190218, end: 20190222
  2. SINEMET PLUS 25 MG/100 MG COMPRIMIDOS , 100 COMPRIMIDOS [Suspect]
     Active Substance: CARBIDOPA\LEVODOPA
     Indication: PARKINSON^S DISEASE
     Route: 048
     Dates: start: 20190218, end: 20190222
  3. PAROXETINA CINFA 20 MG COMPRIMIDOS RECUBIERTOS CON PELICULA EFG , 28 C [Suspect]
     Active Substance: PAROXETINE MESYLATE
     Dosage: 20 MILLIGRAM DAILY;
     Route: 048
     Dates: start: 20190218, end: 20190222

REACTIONS (3)
  - Pain in extremity [Recovering/Resolving]
  - Walking disability [Recovering/Resolving]
  - Fatigue [Recovering/Resolving]

NARRATIVE: CASE EVENT DATE: 20190218
